FAERS Safety Report 5579142-3 (Version None)
Quarter: 2008Q1

REPORT INFORMATION
  Report Type: 
  Country: None (occurrence: None)
  Receive Date: 20080102
  Receipt Date: 20071221
  Transmission Date: 20080703
  Serious: Yes (Hospitalization)
  Sender: FDA-Public Use
  Company Number: GB-ROCHE-516356

PATIENT
  Age: 53 Year
  Sex: Male
  Weight: 122.4 kg

DRUGS (6)
  1. ORLISTAT [Suspect]
     Indication: OBESITY
     Dosage: STOP DATE REPORTED AS 1-2/9/2007.
     Route: 048
     Dates: start: 20070326, end: 20070901
  2. 1 CONCOMITANT DRUG [Concomitant]
     Indication: ANGINA PECTORIS
     Dosage: DRUG REPORTED AS CAVODIL.
     Route: 048
     Dates: start: 20040101
  3. ISOSORBIDE DINITRATE [Concomitant]
     Indication: ANGINA PECTORIS
     Dosage: DATE STARTED: THREE WEEKS AGO.
     Route: 048
     Dates: start: 20070817
  4. SIMVASTATIN [Concomitant]
     Dosage: START DATE REPORTED AS 2004-2005.
     Route: 048
     Dates: start: 20040101
  5. ASPIRIN [Concomitant]
     Dosage: DRUG NAME REPORTED AS ASPIRIN SUBSTITUTE. START DATE REPORTED AS 2001-2002.
     Route: 048
     Dates: start: 20010101
  6. NITROLINGUAL [Concomitant]
     Indication: ANGINA PECTORIS
     Dosage: ROUTE REPORTED AS SPRAY.
     Dates: start: 20010101

REACTIONS (2)
  - ANGINA PECTORIS [None]
  - MYOCARDIAL INFARCTION [None]
